FAERS Safety Report 5618384-5 (Version None)
Quarter: 2008Q1

REPORT INFORMATION
  Report Type: 
  Country: None (occurrence: None)
  Receive Date: 20080205
  Receipt Date: 20080205
  Transmission Date: 20080703
  Serious: Yes (Hospitalization, Other)
  Sender: FDA-Public Use
  Company Number: None

PATIENT
  Sex: Male
  Weight: 96.1626 kg

DRUGS (1)
  1. ALLI [Suspect]
     Indication: OBESITY
     Dosage: 60 MG ORLISTAT 1 CAPSULE/PER DAY ORAL
     Route: 048
     Dates: start: 20071220, end: 20071222

REACTIONS (4)
  - ANXIETY [None]
  - BLOOD URINE [None]
  - URINE ANALYSIS ABNORMAL [None]
  - URINE ODOUR ABNORMAL [None]
